FAERS Safety Report 9225632 (Version 2)
Quarter: 2013Q2

REPORT INFORMATION
  Report Type: Report from Study
  Country: GB (occurrence: GB)
  Receive Date: 20130411
  Receipt Date: 20130422
  Transmission Date: 20140414
  Serious: Yes (Other)
  Sender: FDA-Public Use
  Company Number: GB-VIIV HEALTHCARE LIMITED-A1019508A

PATIENT
  Age: 0 Year
  Sex: Male
  Weight: 2.5 kg

DRUGS (3)
  1. EPZICOM [Suspect]
     Indication: ANTIRETROVIRAL THERAPY
     Dosage: 1TAB PER DAY
     Route: 064
     Dates: start: 20090501
  2. REYATAZ [Suspect]
     Indication: ANTIRETROVIRAL THERAPY
     Dosage: 300MG PER DAY
     Route: 064
     Dates: start: 20090501
  3. NORVIR [Suspect]
     Indication: ANTIRETROVIRAL THERAPY
     Dosage: 100MG PER DAY
     Route: 064
     Dates: start: 20090501

REACTIONS (3)
  - Foetal monitoring abnormal [Unknown]
  - Caesarean section [Unknown]
  - Foetal exposure during pregnancy [Unknown]
